FAERS Safety Report 21842917 (Version 1)
Quarter: 2023Q1

REPORT INFORMATION
  Report Type: Spontaneous
  Country: US (occurrence: US)
  Receive Date: 20230110
  Receipt Date: 20230110
  Transmission Date: 20230417
  Serious: Yes (Other)
  Sender: FDA-Public Use
  Company Number: US-OCULAR THERAPEUTIX-2022OCX00011

PATIENT
  Sex: Male

DRUGS (1)
  1. DEXTENZA [Suspect]
     Active Substance: DEXAMETHASONE
     Dosage: 0.4 MG

REACTIONS (2)
  - Macular oedema [Unknown]
  - Corneal oedema [Recovering/Resolving]
